FAERS Safety Report 14679894 (Version 1)
Quarter: 2018Q1

REPORT INFORMATION
  Report Type: Spontaneous
  Country: CA (occurrence: CA)
  Receive Date: 20180326
  Receipt Date: 20180326
  Transmission Date: 20180509
  Serious: Yes (Life-Threatening, Hospitalization)
  Sender: FDA-Public Use
  Company Number: CA-BAYER-2018-051007

PATIENT
  Age: 74 Year
  Sex: Female
  Weight: 54 kg

DRUGS (1)
  1. AVELOX [Suspect]
     Active Substance: MOXIFLOXACIN HYDROCHLORIDE
     Indication: BRONCHIECTASIS
     Dosage: 400 MG, ONCE
     Route: 048

REACTIONS (6)
  - Hypotension [Recovered/Resolved]
  - Presyncope [Recovered/Resolved]
  - Burning sensation [Recovered/Resolved]
  - Oral discomfort [Recovered/Resolved]
  - Flushing [Recovered/Resolved]
  - Frequent bowel movements [Recovered/Resolved]
